FAERS Safety Report 5674271-8 (Version None)
Quarter: 2008Q1

REPORT INFORMATION
  Report Type: 
  Country: None (occurrence: None)
  Receive Date: 20080320
  Receipt Date: 20080320
  Transmission Date: 20080703
  Serious: Yes (Other)
  Sender: FDA-Public Use
  Company Number: None

PATIENT
  Age: 29 Year
  Sex: Female
  Weight: 92.5338 kg

DRUGS (1)
  1. HEPARIN [Suspect]
     Indication: CYSTITIS INTERSTITIAL
     Dosage: 4 ML DAILY URETHRAL
     Route: 066
     Dates: start: 20080126, end: 20080223

REACTIONS (6)
  - BURNING SENSATION [None]
  - DIZZINESS [None]
  - HEADACHE [None]
  - PAIN [None]
  - PHARMACEUTICAL PRODUCT COMPLAINT [None]
  - POLLAKIURIA [None]
